FAERS Safety Report 12914184 (Version 3)
Quarter: 2017Q1

REPORT INFORMATION
  Report Type: Report from Study
  Country: JP (occurrence: JP)
  Receive Date: 20161106
  Receipt Date: 20170228
  Transmission Date: 20170428
  Serious: Yes (Hospitalization)
  Sender: FDA-Public Use
  Company Number: JP-ASTRAZENECA-2016SF15406

PATIENT
  Age: 68 Year
  Sex: Male
  Weight: 74 kg

DRUGS (15)
  1. PURIFIED SODIUMHYALURONATE [Concomitant]
     Dosage: PRN
     Route: 047
     Dates: start: 20150430
  2. BETAMETHASONE VALERATE. [Concomitant]
     Active Substance: BETAMETHASONE VALERATE
     Dosage: PRN
     Route: 003
     Dates: start: 20150803
  3. LEVOCETIRIZINE [Concomitant]
     Active Substance: LEVOCETIRIZINE
     Route: 048
     Dates: start: 20160314
  4. IRESSA [Suspect]
     Active Substance: GEFITINIB
     Indication: NON-SMALL CELL LUNG CANCER METASTATIC
     Route: 048
     Dates: start: 20150417, end: 20151103
  5. IRESSA [Suspect]
     Active Substance: GEFITINIB
     Indication: NON-SMALL CELL LUNG CANCER METASTATIC
     Route: 048
     Dates: start: 20151111, end: 20161028
  6. ETIZOLAM [Concomitant]
     Active Substance: ETIZOLAM
     Dosage: 0.5MG AS REQUIRED
     Route: 048
     Dates: start: 20150319
  7. BETAMETHASONE VALERATE. [Concomitant]
     Active Substance: BETAMETHASONE VALERATE
     Dosage: PRN
     Route: 003
     Dates: start: 20150803
  8. TEPRENONE [Concomitant]
     Active Substance: TEPRENONE
     Route: 048
     Dates: start: 20151113
  9. CLOBETASOL PROPIONATE. [Concomitant]
     Active Substance: CLOBETASOL PROPIONATE
     Dosage: PRN
     Route: 003
     Dates: start: 20150821
  10. HEPARINOID [Concomitant]
     Active Substance: CHONDROITIN SULFATE (BOVINE)
     Dosage: PRN
     Route: 003
     Dates: start: 20150528
  11. CARPRONIUM CHLORIDE [Concomitant]
     Active Substance: CARPRONIUM CHLORIDE
     Dosage: PRN
     Route: 003
     Dates: start: 20150904
  12. MINOCYCLINE HYDROCHLORIDE. [Concomitant]
     Active Substance: MINOCYCLINE HYDROCHLORIDE
     Dosage: 100.0MG AS REQUIRED
     Route: 048
     Dates: start: 20160314
  13. CROTAMITON/HYDROCORTISONE [Concomitant]
     Dosage: PRN
     Route: 003
     Dates: start: 20150423
  14. FAMOTIDINE. [Concomitant]
     Active Substance: FAMOTIDINE
     Route: 048
     Dates: start: 20151113
  15. MAGNESIUM OXIDE. [Concomitant]
     Active Substance: MAGNESIUM OXIDE
     Dosage: 330.0MG AS REQUIRED
     Route: 048
     Dates: start: 20151225

REACTIONS (1)
  - Aortic dissection [Recovered/Resolved]

NARRATIVE: CASE EVENT DATE: 20161029
